FAERS Safety Report 4911107-4 (Version None)
Quarter: 2006Q1

REPORT INFORMATION
  Report Type: 
  Country: None (occurrence: None)
  Receive Date: 20060214
  Receipt Date: 20060209
  Transmission Date: 20060701
  Serious: Yes (Other)
  Sender: FDA-Public Use
  Company Number: PHBS2006BR02258

PATIENT
  Age: 71 Year
  Sex: Male
  Weight: 88 kg

DRUGS (7)
  1. DIOVAN [Suspect]
     Indication: HYPERTENSION
     Dosage: 80 MG, BID
     Route: 048
     Dates: start: 19960101
  2. NOVORAPID [Concomitant]
     Indication: DIABETES MELLITUS
     Dosage: 5 ML, BID
  3. INSULIN [Concomitant]
     Indication: DIABETES MELLITUS
  4. NOVOLIN N [Concomitant]
     Indication: DIABETES MELLITUS
     Dosage: 39 ML AND 28 ML
  5. ATENOLOL [Concomitant]
     Indication: HYPERTENSION
     Dosage: 100 MG, BID
     Route: 048
  6. NATRILIX [Concomitant]
     Dosage: UNK, QD
     Route: 048
  7. ROXFLAN [Concomitant]
     Indication: HYPERTENSION
     Dosage: UNK, QD
     Route: 048

REACTIONS (2)
  - BLOOD PRESSURE INADEQUATELY CONTROLLED [None]
  - PROSTATE CANCER [None]
